FAERS Safety Report 5632148-8 (Version None)
Quarter: 2008Q1

REPORT INFORMATION
  Report Type: 
  Country: None (occurrence: None)
  Receive Date: 20080220
  Receipt Date: 19960123
  Transmission Date: 20080703
  Serious: Yes (Hospitalization)
  Sender: FDA-Public Use
  Company Number: DE-MERCK-96015549

PATIENT
  Age: 65 Year
  Sex: Female

DRUGS (1)
  1. PEPCID [Suspect]
     Indication: GASTRIC ULCER
     Route: 048

REACTIONS (3)
  - BIPOLAR I DISORDER [None]
  - GRAND MAL CONVULSION [None]
  - HYPONATRAEMIA [None]
